FAERS Safety Report 14112682 (Version 1)
Quarter: 2017Q4

REPORT INFORMATION
  Report Type: Spontaneous
  Country: RO (occurrence: RO)
  Receive Date: 20171021
  Receipt Date: 20171021
  Transmission Date: 20180321
  Serious: Yes (Life-Threatening, Hospitalization, Disabling, Other)
  Sender: FDA-Public Use
  Company Number: RO-ABBVIE-17K-135-2137964-00

PATIENT
  Age: 64 Year
  Sex: Male
  Weight: 75 kg

DRUGS (1)
  1. HUMIRA [Suspect]
     Active Substance: ADALIMUMAB
     Indication: PSORIASIS
     Route: 058
     Dates: start: 201307, end: 201705

REACTIONS (3)
  - Laryngeal neoplasm [Recovering/Resolving]
  - Pharyngeal neoplasm [Recovered/Resolved]
  - Torticollis [Unknown]

NARRATIVE: CASE EVENT DATE: 201706
